FAERS Safety Report 11468037 (Version 1)
Quarter: 2015Q3

REPORT INFORMATION
  Report Type: Spontaneous
  Country: US (occurrence: US)
  Receive Date: 20150908
  Receipt Date: 20150908
  Transmission Date: 20151125
  Serious: No
  Sender: FDA-Public Use
  Company Number: US-PFIZER INC-2015285037

PATIENT
  Age: 68 Year
  Sex: Female
  Weight: 77.98 kg

DRUGS (1)
  1. LYRICA [Suspect]
     Active Substance: PREGABALIN
     Indication: PAIN
     Dosage: 200 MG, DAILY (100MG TWO PILLS A DAY)
     Dates: start: 20150819

REACTIONS (4)
  - Feeling abnormal [Unknown]
  - Pre-existing condition improved [Unknown]
  - Therapeutic response unexpected [Unknown]
  - Feeling drunk [Unknown]

NARRATIVE: CASE EVENT DATE: 201508
